FAERS Safety Report 7597817-1 (Version None)
Quarter: 2011Q3

REPORT INFORMATION
  Report Type: 
  Country: None (occurrence: None)
  Receive Date: 20110708
  Receipt Date: 20110630
  Transmission Date: 20111222
  Serious: Yes (Hospitalization)
  Sender: FDA-Public Use
  Company Number: US-US-EMD SERONO, INC.-7068668

PATIENT
  Sex: Female
  Weight: 64 kg

DRUGS (3)
  1. REBIF [Suspect]
     Route: 058
  2. UNSPECIFIED MEDICATION [Concomitant]
  3. REBIF [Suspect]
     Indication: MULTIPLE SCLEROSIS
     Route: 058
     Dates: start: 20020814, end: 20101001

REACTIONS (11)
  - VITAMIN D DECREASED [None]
  - HEADACHE [None]
  - PULMONARY THROMBOSIS [None]
  - DRUG DOSE OMISSION [None]
  - BLOOD CHOLESTEROL ABNORMAL [None]
  - INJECTION SITE HAEMATOMA [None]
  - FATIGUE [None]
  - INJECTION SITE DISCOMFORT [None]
  - PULMONARY EMBOLISM [None]
  - THROMBOSIS [None]
  - PALPITATIONS [None]
